FAERS Safety Report 19799278 (Version 2)
Quarter: 2022Q2

REPORT INFORMATION
  Report Type: Spontaneous
  Country: US (occurrence: US)
  Receive Date: 20210907
  Receipt Date: 20220502
  Transmission Date: 20220721
  Serious: No
  Sender: FDA-Public Use
  Company Number: US-PFIZER INC-202101105061

PATIENT
  Age: 61 Year
  Sex: Male
  Weight: 65.77 kg

DRUGS (2)
  1. SERTRALINE HYDROCHLORIDE [Suspect]
     Active Substance: SERTRALINE HYDROCHLORIDE
     Indication: Depression
     Dosage: 200 MG, 1X/DAY
     Route: 048
     Dates: start: 2014, end: 2014
  2. ZOLOFT [Concomitant]
     Active Substance: SERTRALINE HYDROCHLORIDE
     Indication: Depression
     Dosage: 200 MG, 1X/DAY
     Route: 048
     Dates: start: 1993

REACTIONS (5)
  - Dyscalculia [Recovered/Resolved]
  - Staring [Recovered/Resolved]
  - Dyscalculia [Recovered/Resolved]
  - Impaired work ability [Recovered/Resolved]
  - Drug ineffective [Unknown]

NARRATIVE: CASE EVENT DATE: 20140101
